FAERS Safety Report 8006886 (Version 5)
Quarter: 2013Q2

REPORT INFORMATION
  Report Type: Report from Study
  Country: SE (occurrence: SE)
  Receive Date: 20110623
  Receipt Date: 20130618
  Transmission Date: 20140414
  Serious: Yes (Other)
  Sender: FDA-Public Use
  Company Number: SE-JNJFOC-20110504471

PATIENT
  Age: 33 Year
  Sex: Female

DRUGS (2)
  1. REMICADE [Suspect]
     Indication: CROHN^S DISEASE
     Dosage: TREATMENT TEMPORARILY POSTPONED WITH A 2 WEEK DELAY IN NOV-2010 FOR NEUTROPENIA. TREATMENT ONGOING.
     Route: 042
     Dates: start: 200704
  2. REMICADE [Suspect]
     Indication: CROHN^S DISEASE
     Route: 042
     Dates: start: 20061027

REACTIONS (3)
  - Premature delivery [Recovered/Resolved]
  - Exposure during pregnancy [Recovered/Resolved]
  - Neutropenia [Unknown]
